FAERS Safety Report 9904870 (Version 2)
Quarter: 2014Q1

REPORT INFORMATION
  Report Type: Spontaneous
  Country: JP (occurrence: JP)
  Receive Date: 20140218
  Receipt Date: 20140218
  Transmission Date: 20141002
  Serious: Yes (Hospitalization)
  Sender: FDA-Public Use
  Company Number: JP-B.I. PHARMACEUTICALS,INC./RIDGEFIELD-2014-BI-06419NB

PATIENT
  Age: 87 Year
  Sex: Female

DRUGS (3)
  1. PRAZAXA [Suspect]
     Indication: ATRIAL FIBRILLATION
     Dosage: 220 MG
     Route: 048
     Dates: end: 20140207
  2. PRAZAXA [Suspect]
     Dosage: 110 MG
     Route: 048
  3. ANTIPYRETICS, ANALGESICS AND ANTI-INFLAMMATORY AGENTS [Suspect]
     Indication: PAIN
     Route: 065
     Dates: end: 20140206

REACTIONS (2)
  - Fall [Unknown]
  - Renal impairment [Not Recovered/Not Resolved]
